FAERS Safety Report 7097752-1 (Version None)
Quarter: 2010Q4

REPORT INFORMATION
  Report Type: 
  Country: None (occurrence: None)
  Receive Date: 20101112
  Receipt Date: 20100105
  Transmission Date: 20110411
  Serious: Yes (Hospitalization, Other)
  Sender: FDA-Public Use
  Company Number: US-ASTRAZENECA-2009SE18551

PATIENT
  Age: 43 Year
  Sex: Male
  Weight: 95.3 kg

DRUGS (10)
  1. SEROQUEL [Suspect]
     Indication: DEPRESSION
     Route: 048
     Dates: start: 20030304
  2. SEROQUEL [Suspect]
     Dosage: 200-400 MG
     Route: 048
     Dates: start: 20030305, end: 20040101
  3. SEROQUEL [Suspect]
     Dosage: 200-400 MG
     Route: 048
     Dates: start: 20030620
  4. ZOLOFT [Concomitant]
     Dates: start: 20030620
  5. ZOLOFT [Concomitant]
     Dates: start: 20030304
  6. ASPIRIN [Concomitant]
     Dates: start: 20030304
  7. TENORMIN [Concomitant]
     Dates: start: 20030304
  8. CARDIZEM CD [Concomitant]
     Dates: start: 20030304
  9. VASOTEC [Concomitant]
     Dates: start: 20030304
  10. PRILOSEC [Concomitant]
     Dates: start: 20030304

REACTIONS (6)
  - DIABETIC NEUROPATHY [None]
  - PANCREATIC PSEUDOCYST [None]
  - PANCREATITIS [None]
  - PANCREATITIS ACUTE [None]
  - PANCREATITIS CHRONIC [None]
  - TYPE 2 DIABETES MELLITUS [None]
